FAERS Safety Report 12662634 (Version 5)
Quarter: 2017Q1

REPORT INFORMATION
  Report Type: Spontaneous
  Country: US (occurrence: US)
  Receive Date: 20160818
  Receipt Date: 20170106
  Transmission Date: 20170428
  Serious: Yes (Hospitalization)
  Sender: FDA-Public Use
  Company Number: US-ASTRAZENECA-2016SE88283

PATIENT
  Age: 67 Year
  Sex: Female

DRUGS (3)
  1. NEXIUM 24HR [Suspect]
     Active Substance: ESOMEPRAZOLE MAGNESIUM
     Indication: GASTROOESOPHAGEAL REFLUX DISEASE
     Dosage: 8 PILLS
     Route: 048
     Dates: start: 20160912
  2. NEXIUM 24HR [Suspect]
     Active Substance: ESOMEPRAZOLE MAGNESIUM
     Indication: GASTROOESOPHAGEAL REFLUX DISEASE
     Dosage: TWO DAILY AT NIGHT BEFORE BED
     Route: 048
  3. NEXIUM 24HR [Suspect]
     Active Substance: ESOMEPRAZOLE MAGNESIUM
     Indication: GASTROOESOPHAGEAL REFLUX DISEASE
     Dosage: 20 MG TWO TIMES A DAY
     Route: 048
     Dates: start: 1996

REACTIONS (5)
  - Gastrooesophageal reflux disease [Recovered/Resolved]
  - Intentional product misuse [Unknown]
  - Product physical issue [Recovered/Resolved]
  - Product quality issue [Unknown]
  - Poor quality drug administered [Recovered/Resolved]
